FAERS Safety Report 9340894 (Version 1)
Quarter: 2013Q2

REPORT INFORMATION
  Report Type: Spontaneous
  Country: GB (occurrence: None)
  Receive Date: 20130605
  Receipt Date: 20130605
  Transmission Date: 20140414
  Serious: Yes (Death, Hospitalization)
  Sender: FDA-Public Use
  Company Number: FK201301865

PATIENT
  Age: 53 Year
  Sex: Female
  Weight: 55 kg

DRUGS (7)
  1. METHOTREXATE (METHOTREXATE) (UNKNOWN) [Suspect]
     Indication: RHEUMATOID ARTHRITIS
     Route: 048
     Dates: start: 20090727
  2. ENBREL [Suspect]
     Indication: RHEUMATOID ARTHRITIS
     Route: 058
     Dates: start: 20130107
  3. BENDROFLUAZIDE (BENDROFLUMETHIAZIDE) [Concomitant]
  4. CANDESARTAN (CANDESARTAN) [Concomitant]
  5. FRUSEMIDE (FUROSEMIDE) [Concomitant]
  6. FOLIC ACID (FOLIC ACID) [Concomitant]
  7. MOBIC (MELOXICAM) [Concomitant]

REACTIONS (12)
  - Encephalomyelitis [None]
  - Convulsion [None]
  - Coma scale abnormal [None]
  - Unresponsive to stimuli [None]
  - Lymphopenia [None]
  - Confusional state [None]
  - Cough [None]
  - Pyrexia [None]
  - Malaise [None]
  - Musculoskeletal stiffness [None]
  - Posturing [None]
  - Oropharyngeal pain [None]
